FAERS Safety Report 4619968-3 (Version None)
Quarter: 2005Q1

REPORT INFORMATION
  Report Type: 
  Country: None (occurrence: None)
  Receive Date: 20050323
  Receipt Date: 20050323
  Transmission Date: 20050727
  Serious: Yes (Hospitalization)
  Sender: FDA-Public Use
  Company Number: None

PATIENT
  Age: 38 Year
  Sex: Female
  Weight: 79.3795 kg

DRUGS (8)
  1. REMICADE [Suspect]
     Dosage: 300 MG IV-3RD LOADING DOSE 4 WKS AFTER 2ND DOSE
     Route: 042
  2. METHOTREXATE [Concomitant]
  3. IBUPROFEN [Concomitant]
  4. TOPAMAX [Concomitant]
  5. CLARINEX [Concomitant]
  6. RHINOCORT [Concomitant]
  7. NUVARING [Concomitant]
  8. BENADRYL [Concomitant]

REACTIONS (1)
  - EPIGLOTTITIS [None]
